FAERS Safety Report 11201020 (Version 1)
Quarter: 2015Q2

REPORT INFORMATION
  Report Type: Spontaneous
  Country: FR (occurrence: FR)
  Receive Date: 20150618
  Receipt Date: 20150618
  Transmission Date: 20150821
  Serious: Yes (Hospitalization)
  Sender: FDA-Public Use
  Company Number: FR-MYLANLABS-2015M1019974

PATIENT

DRUGS (1)
  1. SUNITINIB [Suspect]
     Active Substance: SUNITINIB
     Indication: RENAL CANCER
     Dosage: 50 MG/DAY ON A 4-WEEKS-ON/2-WEEKS-OFF
     Route: 065
     Dates: start: 201010

REACTIONS (2)
  - Rectal perforation [Recovering/Resolving]
  - Pneumoretroperitoneum [Unknown]
